FAERS Safety Report 16859158 (Version 1)
Quarter: 2019Q3

REPORT INFORMATION
  Report Type: Spontaneous
  Country: US (occurrence: US)
  Receive Date: 20190926
  Receipt Date: 20190926
  Transmission Date: 20191005
  Serious: No
  Sender: FDA-Public Use
  Company Number: PHEH2019US039291

PATIENT
  Sex: Female

DRUGS (1)
  1. RECLAST [Suspect]
     Active Substance: ZOLEDRONIC ACID
     Indication: PRODUCT USED FOR UNKNOWN INDICATION
     Dosage: UNK (INFUSION)
     Route: 041

REACTIONS (5)
  - Eye disorder [Unknown]
  - Pyrexia [Unknown]
  - Vomiting [Unknown]
  - Arthralgia [Unknown]
  - Myalgia [Unknown]
